FAERS Safety Report 5633777-8 (Version None)
Quarter: 2008Q1

REPORT INFORMATION
  Report Type: 
  Country: None (occurrence: None)
  Receive Date: 20080219
  Receipt Date: 20080211
  Transmission Date: 20080703
  Serious: Yes (Hospitalization)
  Sender: FDA-Public Use
  Company Number: TCI2008A00116

PATIENT
  Age: 63 Year
  Sex: Male

DRUGS (6)
  1. TAP-144SR3M(CODE NOT BROKEN) (LEUPROLIDE ACETATE) (INJECTION) [Suspect]
     Indication: SPINAL MUSCULAR ATROPHY
     Dosage: 11.25 MG OR PLACEBO (1 IN 12 WK) SUBCUTANEOUS
     Route: 058
     Dates: start: 20070124, end: 20071004
  2. DIOVAN [Concomitant]
  3. AMLODIN (AMLODIPINE BESILATE) (TABLETS) [Concomitant]
  4. METHYCOBAL (MECOBALAMIN) (TABLETS) [Concomitant]
  5. JUVELA NICOTINATE (TOCOPHERYL NICOTINATE) (CAPSULES) [Concomitant]
  6. MAGLAX (MAGNESIUM OXIDE) (TABLETS) [Concomitant]

REACTIONS (6)
  - BILE DUCT STENOSIS [None]
  - CHOLECYSTITIS ACUTE [None]
  - CHOLELITHIASIS [None]
  - GALLBLADDER DISORDER [None]
  - GALLBLADDER ENLARGEMENT [None]
  - GENERAL PHYSICAL HEALTH DETERIORATION [None]
